FAERS Safety Report 9716067 (Version 2)
Quarter: 2013Q4

REPORT INFORMATION
  Report Type: Spontaneous
  Country: FR (occurrence: FR)
  Receive Date: 20131127
  Receipt Date: 20131127
  Transmission Date: 20140711
  Serious: Yes (Other)
  Sender: FDA-Public Use
  Company Number: FR-SA-E2012-10545

PATIENT
  Age: 27 Year
  Sex: Female

DRUGS (2)
  1. TUBERCULIN PPD(M) 5 TU [Suspect]
     Indication: TUBERCULIN TEST
     Route: 065
     Dates: start: 2012, end: 2012
  2. MMR VACCINE [Suspect]
     Indication: IMMUNISATION
     Route: 065
     Dates: start: 2012, end: 2012

REACTIONS (3)
  - Exposure during pregnancy [Unknown]
  - Abortion induced [Unknown]
  - Foetal death [Unknown]
